FAERS Safety Report 15132897 (Version 1)
Quarter: 2018Q3

REPORT INFORMATION
  Report Type: Spontaneous
  Country: IN (occurrence: IN)
  Receive Date: 20180712
  Receipt Date: 20180712
  Transmission Date: 20181010
  Serious: Yes (Hospitalization, Other)
  Sender: FDA-Public Use
  Company Number: IN-MACLEODS PHARMACEUTICALS US LTD-MAC2018014939

PATIENT

DRUGS (1)
  1. OLANZAPINE 10MG TABLETS [Suspect]
     Active Substance: OLANZAPINE
     Indication: PRODUCT USED FOR UNKNOWN INDICATION
     Dosage: 10 MILLIGRAM, SINGLE, 2 DOSAGE FORM, TOTAL, OVERDOSE
     Route: 048

REACTIONS (9)
  - Electrocardiogram abnormal [Recovered/Resolved]
  - Loss of consciousness [Recovered/Resolved]
  - Depressed level of consciousness [Unknown]
  - Miosis [Unknown]
  - Accidental overdose [Unknown]
  - Tachycardia [Unknown]
  - Hypotension [Unknown]
  - Toxicity to various agents [Unknown]
  - Accidental exposure to product by child [Unknown]
